FAERS Safety Report 16779778 (Version 1)
Quarter: 2019Q3

REPORT INFORMATION
  Report Type: Spontaneous
  Country: US (occurrence: US)
  Receive Date: 20190906
  Receipt Date: 20190906
  Transmission Date: 20191005
  Serious: No
  Sender: FDA-Public Use
  Company Number: US-GLAXOSMITHKLINE-US2019AMR157411

PATIENT
  Sex: Female

DRUGS (2)
  1. BECONASE AQ [Suspect]
     Active Substance: BECLOMETHASONE DIPROPIONATE MONOHYDRATE
     Indication: NASAL CONGESTION
     Dosage: UNK
     Route: 065
  2. BECONASE AQ [Suspect]
     Active Substance: BECLOMETHASONE DIPROPIONATE MONOHYDRATE
     Indication: EAR DISCOMFORT

REACTIONS (3)
  - Hypersensitivity [Unknown]
  - Asthma [Unknown]
  - Dyspnoea [Recovering/Resolving]
